FAERS Safety Report 22624245 (Version 1)
Quarter: 2023Q2

REPORT INFORMATION
  Report Type: Spontaneous
  Country: US (occurrence: US)
  Receive Date: 20230621
  Receipt Date: 20230621
  Transmission Date: 20230722
  Serious: No
  Sender: FDA-Public Use
  Company Number: US-BAYER-2023A086358

PATIENT
  Age: 4 Year
  Sex: Male

DRUGS (3)
  1. CHILDREN CLARITIN ALLERGY [Suspect]
     Active Substance: LORATADINE
     Indication: Allergic respiratory symptom
     Dosage: 10 ML, ONCE
     Route: 048
  2. CHILDREN CLARITIN ALLERGY [Suspect]
     Active Substance: LORATADINE
     Indication: Nasopharyngitis
     Dosage: 5 ML, QD
  3. ONE A DAY Kids Bugs Bunny and Friends Complete [Concomitant]
     Dosage: 1 DF, QD
     Route: 065

REACTIONS (1)
  - Accidental exposure to product by child [Unknown]
